FAERS Safety Report 10644301 (Version 3)
Quarter: 2015Q1

REPORT INFORMATION
  Report Type: Spontaneous
  Country: US (occurrence: US)
  Receive Date: 20141210
  Receipt Date: 20150319
  Transmission Date: 20150720
  Serious: No
  Sender: FDA-Public Use
  Company Number: US-GLAXOSMITHKLINE-US2014GSK029824

PATIENT
  Age: 57 Year
  Sex: Male

DRUGS (1)
  1. AVODART [Suspect]
     Active Substance: DUTASTERIDE
     Indication: PROSTATIC DISORDER
     Dosage: 0.5 MG, QD
     Route: 048
     Dates: start: 201410

REACTIONS (2)
  - Product quality issue [Unknown]
  - Drug ineffective [Not Recovered/Not Resolved]

NARRATIVE: CASE EVENT DATE: 20141102
